FAERS Safety Report 10056012 (Version 2)
Quarter: 2014Q2

REPORT INFORMATION
  Report Type: Spontaneous
  Country: US (occurrence: US)
  Receive Date: 20140403
  Receipt Date: 20140527
  Transmission Date: 20141212
  Serious: Yes (Hospitalization)
  Sender: FDA-Public Use
  Company Number: US-JNJFOC-20140400594

PATIENT
  Sex: Male

DRUGS (2)
  1. XARELTO [Suspect]
     Indication: FACTOR V LEIDEN MUTATION
     Route: 048
     Dates: start: 2014
  2. XARELTO [Suspect]
     Indication: FACTOR V LEIDEN MUTATION
     Route: 048
     Dates: end: 2014

REACTIONS (2)
  - Coronary artery thrombosis [Recovered/Resolved]
  - Off label use [Unknown]
